FAERS Safety Report 23301606 (Version 1)
Quarter: 2023Q4

REPORT INFORMATION
  Report Type: Spontaneous
  Country: BR (occurrence: BR)
  Receive Date: 20231215
  Receipt Date: 20231215
  Transmission Date: 20240109
  Serious: Yes (Hospitalization)
  Sender: FDA-Public Use
  Company Number: BR-Zuellig Korea-ATNAHS20231203722

PATIENT
  Sex: Female

DRUGS (1)
  1. VALIUM [Suspect]
     Active Substance: DIAZEPAM
     Indication: Product used for unknown indication
     Route: 048

REACTIONS (6)
  - Agitation [Unknown]
  - Fatigue [Unknown]
  - Dyspnoea [Unknown]
  - Blood pressure increased [Unknown]
  - Palpitations [Unknown]
  - Malaise [Unknown]
